FAERS Safety Report 4373443-2 (Version None)
Quarter: 2004Q2

REPORT INFORMATION
  Report Type: 
  Country: None (occurrence: None)
  Receive Date: 20040608
  Receipt Date: 20040527
  Transmission Date: 20050107
  Serious: Yes (Hospitalization)
  Sender: FDA-Public Use
  Company Number: DE-MERCK-0405DEU00195

PATIENT
  Age: 75 Year
  Sex: Male

DRUGS (7)
  1. AMITRIPTYLINE HYDROCHLORIDE [Concomitant]
     Route: 048
     Dates: start: 20040502
  2. DALTEPARIN SODIUM [Concomitant]
     Route: 065
     Dates: start: 20040502
  3. HYDROCHLOROTHIAZIDE AND TRIAMTERENE [Concomitant]
     Route: 048
  4. LEVOFLOXACIN [Suspect]
     Route: 048
     Dates: start: 20040502, end: 20040519
  5. LEVOFLOXACIN [Suspect]
     Route: 048
     Dates: start: 20040520
  6. VIOXX [Suspect]
     Indication: HIP DISARTICULATION
     Route: 048
     Dates: start: 20040502, end: 20040519
  7. TAMSULOSIN HYDROCHLORIDE [Concomitant]
     Route: 048
     Dates: start: 20040502

REACTIONS (1)
  - RENAL FAILURE [None]
